FAERS Safety Report 8572988-9 (Version None)
Quarter: 2012Q2

REPORT INFORMATION
  Report Type: 
  Country: None (occurrence: None)
  Receive Date: 20120423
  Receipt Date: 20090922
  Transmission Date: 20120825
  Serious: Yes (Hospitalization)
  Sender: FDA-Public Use
  Company Number: PHEH2009US11682

PATIENT
  Age: 71 Year
  Sex: Male

DRUGS (4)
  1. EXJADE [Suspect]
     Indication: IRON OVERLOAD
     Dosage: 1000 MG DAILY, ORAL, 1500 MG DAILY, ORAL , 2 QD, ORAL
     Route: 048
     Dates: start: 20081117
  2. EXJADE [Suspect]
     Indication: MYELODYSPLASTIC SYNDROME
     Dosage: 1000 MG DAILY, ORAL, 1500 MG DAILY, ORAL , 2 QD, ORAL
     Route: 048
     Dates: start: 20081117
  3. EXJADE [Suspect]
     Indication: IRON OVERLOAD
     Dosage: 1000 MG DAILY, ORAL, 1500 MG DAILY, ORAL , 2 QD, ORAL
     Route: 048
     Dates: start: 20090701, end: 20090923
  4. EXJADE [Suspect]
     Indication: MYELODYSPLASTIC SYNDROME
     Dosage: 1000 MG DAILY, ORAL, 1500 MG DAILY, ORAL , 2 QD, ORAL
     Route: 048
     Dates: start: 20090701, end: 20090923

REACTIONS (1)
  - INFECTION [None]
